FAERS Safety Report 9765750 (Version 1)
Quarter: 2013Q4

REPORT INFORMATION
  Report Type: Spontaneous
  Country: US (occurrence: US)
  Receive Date: 20131217
  Receipt Date: 20131217
  Transmission Date: 20140711
  Serious: No
  Sender: FDA-Public Use
  Company Number: US-BIOGENIDEC-2013BI116332

PATIENT
  Age: 51 Year
  Sex: Female

DRUGS (19)
  1. TECFIDERA [Suspect]
     Indication: MULTIPLE SCLEROSIS
     Route: 048
     Dates: start: 20130523
  2. ASPIRIN EC [Concomitant]
  3. CAMBIA [Concomitant]
  4. CRESTOR [Concomitant]
  5. IBUPROFEN [Concomitant]
  6. KEPPRA [Concomitant]
  7. KLONOPIN [Concomitant]
  8. MIRAPEX [Concomitant]
  9. NITROGLYCERIN ER [Concomitant]
  10. NORVASC [Concomitant]
  11. OMEGA-3 FISH OIL EX ST [Concomitant]
  12. POTASSIMIN [Concomitant]
  13. PROVIGIL [Concomitant]
  14. PROZAC [Concomitant]
  15. RELPAX [Concomitant]
  16. TOPROL XL [Concomitant]
  17. TRAMADOL HCL [Concomitant]
  18. VITAMIN D [Concomitant]
  19. XANAX [Concomitant]

REACTIONS (2)
  - Dizziness [Unknown]
  - Fatigue [Unknown]
